FAERS Safety Report 15210839 (Version 1)
Quarter: 2018Q3

REPORT INFORMATION
  Report Type: Spontaneous
  Country: US (occurrence: US)
  Receive Date: 20180629
  Receipt Date: 20180629
  Transmission Date: 20181010
  Serious: No
  Sender: FDA-Public Use
  Company Number: None

PATIENT
  Sex: Female

DRUGS (1)
  1. FENTANYL 100 MCG/HR 72 HR PATCHES [Suspect]
     Active Substance: FENTANYL

REACTIONS (1)
  - Death [None]
